FAERS Safety Report 25355426 (Version 1)
Quarter: 2025Q2

REPORT INFORMATION
  Report Type: Report from Study
  Country: US (occurrence: US)
  Receive Date: 20250524
  Receipt Date: 20250524
  Transmission Date: 20250717
  Serious: Yes (Hospitalization)
  Sender: ABBVIE
  Company Number: US-ABBVIE-6297417

PATIENT
  Age: 65 Year
  Sex: Female

DRUGS (3)
  1. RINVOQ [Suspect]
     Active Substance: UPADACITINIB
     Indication: Colitis ulcerative
     Dosage: STRENGTH: 15 MG
     Route: 048
     Dates: start: 20240511
  2. RINVOQ [Suspect]
     Active Substance: UPADACITINIB
     Indication: Colitis ulcerative
     Dosage: STRENGTH: 15 MG
     Route: 048
  3. RINVOQ [Suspect]
     Active Substance: UPADACITINIB
     Indication: Colitis ulcerative
     Dosage: STRENGTH: 15 MG?DOSE INCREASED 15 MG TABLET 3 TIMES DAILY
     Route: 048
     Dates: start: 20250508

REACTIONS (7)
  - Systemic lupus erythematosus [Unknown]
  - Meningitis aseptic [Unknown]
  - Sinusitis [Recovering/Resolving]
  - Colitis ulcerative [Unknown]
  - Product administration error [Unknown]
  - Neck pain [Recovering/Resolving]
  - Arthralgia [Recovering/Resolving]

NARRATIVE: CASE EVENT DATE: 20250401
